FAERS Safety Report 6646142-1 (Version None)
Quarter: 2010Q1

REPORT INFORMATION
  Report Type: 
  Country: None (occurrence: None)
  Receive Date: 20100322
  Receipt Date: 20100322
  Transmission Date: 20100710
  Serious: No
  Sender: FDA-Public Use
  Company Number: None

PATIENT
  Age: 72 Year
  Sex: Female
  Weight: 99.7913 kg

DRUGS (1)
  1. PRAMIPEXOLE DIHYDROCHLORIDE [Suspect]
     Indication: RESTLESS LEGS SYNDROME
     Dosage: 0.25MG 1 TAB BEDTIME PO
     Route: 048
     Dates: start: 20100215, end: 20100303

REACTIONS (3)
  - FEELING HOT [None]
  - RASH ERYTHEMATOUS [None]
  - RASH MACULAR [None]
